FAERS Safety Report 14074389 (Version 1)
Quarter: 2017Q4

REPORT INFORMATION
  Report Type: Spontaneous
  Country: US (occurrence: None)
  Receive Date: 20171011
  Receipt Date: 20171011
  Transmission Date: 20180321
  Serious: Yes (Hospitalization)
  Sender: FDA-Public Use
  Company Number: None

PATIENT
  Age: 24 Year
  Sex: Male

DRUGS (8)
  1. PREGRESTERONE [Concomitant]
  2. FOLIC ACID. [Concomitant]
     Active Substance: FOLIC ACID
  3. PRO STAT [Concomitant]
  4. SENOKOT [Concomitant]
     Active Substance: SENNOSIDES
  5. MAKENA [Suspect]
     Active Substance: HYDROXYPROGESTERONE CAPROATE
     Indication: PREGNANCY
     Route: 030
     Dates: start: 20170626
  6. ASPIRIN. [Concomitant]
     Active Substance: ASPIRIN
  7. WELLBUTRIN [Concomitant]
     Active Substance: BUPROPION HYDROCHLORIDE
  8. PRENATAL [Concomitant]
     Active Substance: VITAMINS

REACTIONS (2)
  - Premature labour [None]
  - Maternal exposure timing unspecified [None]
